FAERS Safety Report 13035123 (Version 2)
Quarter: 2019Q3

REPORT INFORMATION
  Report Type: Spontaneous
  Country: FR (occurrence: FR)
  Receive Date: 20161216
  Receipt Date: 20190719
  Transmission Date: 20191004
  Serious: Yes (Disabling, Other)
  Sender: FDA-Public Use
  Company Number: FR-PFIZER INC-2016573920

PATIENT
  Age: 26 Year
  Sex: Female

DRUGS (5)
  1. PLAQUENIL [HYDROXYCHLOROQUINE PHOSPHATE] [Suspect]
     Active Substance: HYDROXYCHLOROQUINE DIPHOSPHATE
     Indication: SJOGREN^S SYNDROME
     Dosage: UNK
     Route: 048
     Dates: start: 201505
  2. PREDNISONE. [Suspect]
     Active Substance: PREDNISONE
     Indication: MONONEURITIS
     Dosage: 8 MG, 1X/DAY
     Route: 048
     Dates: start: 201512
  3. IMUREL [AZATHIOPRINE] [Suspect]
     Active Substance: AZATHIOPRINE
     Indication: MONONEURITIS
     Dosage: 2 MG, 1X/DAY
     Route: 048
     Dates: start: 201603
  4. ENDOXAN [CYCLOPHOSPHAMIDE] [Suspect]
     Active Substance: CYCLOPHOSPHAMIDE
     Indication: MONONEURITIS
     Dosage: 3 COURSES IN TOTAL
     Route: 042
     Dates: start: 201512, end: 201602
  5. LYRICA [Suspect]
     Active Substance: PREGABALIN
     Dosage: UNK
     Route: 048
     Dates: start: 201601

REACTIONS (2)
  - Hypertrophic cardiomyopathy [Not Recovered/Not Resolved]
  - Ejection fraction decreased [Not Recovered/Not Resolved]

NARRATIVE: CASE EVENT DATE: 201610
